FAERS Safety Report 5109852-3 (Version None)
Quarter: 2006Q3

REPORT INFORMATION
  Report Type: 
  Country: None (occurrence: None)
  Receive Date: 20060918
  Receipt Date: 20060918
  Transmission Date: 20061208
  Serious: Yes (Hospitalization)
  Sender: FDA-Public Use
  Company Number: None

PATIENT
  Sex: Female
  Weight: 60.3284 kg

DRUGS (2)
  1. VINORELBINE TARTRATE [Suspect]
     Indication: VULVAL CANCER METASTATIC
     Dosage: 20 MG/M2    D 1,8,15 Q 28 D    IV
     Route: 042
     Dates: start: 20060914, end: 20060914
  2. LAPATINIB  1000 MG [Suspect]
     Indication: VULVAL CANCER METASTATIC
     Dosage: 1000MG  DAILY  P.O.
     Route: 048
     Dates: start: 20060914, end: 20060914

REACTIONS (6)
  - HAEMOPTYSIS [None]
  - INFUSION RELATED REACTION [None]
  - INTESTINAL OBSTRUCTION [None]
  - PRODUCTIVE COUGH [None]
  - SPUTUM DISCOLOURED [None]
  - VOMITING [None]
